FAERS Safety Report 14737833 (Version 1)
Quarter: 2018Q2

REPORT INFORMATION
  Report Type: Spontaneous
  Country: PL (occurrence: PL)
  Receive Date: 20180409
  Receipt Date: 20180409
  Transmission Date: 20180711
  Serious: Yes (Other)
  Sender: FDA-Public Use
  Company Number: PL-TEVA-2018-PL-879885

PATIENT
  Age: 60 Year
  Sex: Female

DRUGS (1)
  1. NAMAXIR [Suspect]
     Active Substance: METHOTREXATE
     Indication: RHEUMATOID ARTHRITIS
     Route: 065
     Dates: start: 20180326, end: 20180326

REACTIONS (8)
  - Pruritus [Recovering/Resolving]
  - Hypersensitivity [Recovering/Resolving]
  - Oropharyngeal pain [Recovering/Resolving]
  - Dyspnoea [Recovered/Resolved]
  - Gingivitis [Recovering/Resolving]
  - Cough [Recovering/Resolving]
  - Dysphagia [Recovering/Resolving]
  - Oropharyngeal blistering [Recovering/Resolving]

NARRATIVE: CASE EVENT DATE: 20180326
